FAERS Safety Report 9702103 (Version 2)
Quarter: 2013Q4

REPORT INFORMATION
  Report Type: Spontaneous
  Country: US (occurrence: None)
  Receive Date: 20131120
  Receipt Date: 20131129
  Transmission Date: 20140711
  Serious: Yes (Other)
  Sender: FDA-Public Use
  Company Number: 2013-US-002999

PATIENT
  Age: 45 Year
  Sex: Female
  Weight: 99.3 kg

DRUGS (9)
  1. XYREM [Suspect]
     Indication: INSOMNIA
     Route: 048
     Dates: start: 200605, end: 2006
  2. XANAX (ALPRAZOLAM) [Concomitant]
  3. KEPPRA (LEVETIRACETAM) [Concomitant]
  4. PHENOBARBITAL [Concomitant]
  5. CYMBALTA (DULOXETINE HYDROCHLORIDE) [Concomitant]
  6. OMEPRAZOLE [Concomitant]
  7. SOMA (CARISOPRODOL) [Concomitant]
  8. HYDROCODONE/ACETAMINOPHEN (HYDROCODONE, PARACETAMOL) [Concomitant]
  9. FOLIC ACID [Concomitant]

REACTIONS (3)
  - Epilepsy [None]
  - Migraine [None]
  - Pain [None]
